FAERS Safety Report 8172100-4 (Version None)
Quarter: 2012Q1

REPORT INFORMATION
  Report Type: 
  Country: None (occurrence: None)
  Receive Date: 20120228
  Receipt Date: 20120222
  Transmission Date: 20120608
  Serious: Yes (Hospitalization)
  Sender: FDA-Public Use
  Company Number: US-B.I. PHARMACEUTICALS,INC./RIDGEFIELD-2011-BP-26050BP

PATIENT
  Age: 58 Year
  Sex: Male
  Weight: 83.91 kg

DRUGS (6)
  1. FENOFIBRATE [Concomitant]
     Dosage: 160 MG
  2. METOPROLOL [Concomitant]
     Dosage: 50 MG
  3. DILTIAZEM HCL [Concomitant]
     Dosage: 240 MG
  4. LIPITOR [Concomitant]
     Dosage: 80 MG
  5. METFORMIN HCL [Concomitant]
     Dosage: 1700 MG
  6. PRADAXA [Suspect]
     Indication: ATRIAL FIBRILLATION
     Dosage: 300 MG
     Route: 048
     Dates: start: 20110930, end: 20111104

REACTIONS (1)
  - RECTAL HAEMORRHAGE [None]
